FAERS Safety Report 6968695-6 (Version None)
Quarter: 2010Q3

REPORT INFORMATION
  Report Type: 
  Country: None (occurrence: None)
  Receive Date: 20100907
  Receipt Date: 20100806
  Transmission Date: 20110219
  Serious: No
  Sender: FDA-Public Use
  Company Number: US-BAYER-201019443BCC

PATIENT
  Age: 84 Year
  Sex: Female
  Weight: 69 kg

DRUGS (2)
  1. ALEVE (CAPLET) [Suspect]
     Indication: ARTHRALGIA
     Dosage: TOTAL DAILY DOSE: 440 MG  UNIT DOSE: 220 MG
     Route: 048
     Dates: start: 20090623
  2. CVS CALCIUM WITH VITAMIN D [Concomitant]
     Route: 065

REACTIONS (1)
  - THROAT IRRITATION [None]
